FAERS Safety Report 8568173-7 (Version None)
Quarter: 2012Q3

REPORT INFORMATION
  Report Type: 
  Country: None (occurrence: None)
  Receive Date: 20120803
  Receipt Date: 20120727
  Transmission Date: 20120928
  Serious: Yes (Other)
  Sender: FDA-Public Use
  Company Number: US-009507513-1207USA012057

PATIENT

DRUGS (16)
  1. HYDROCODONE BITARTRATE [Suspect]
  2. LYRICA [Suspect]
     Dosage: UNK
     Route: 048
  3. KLONOPIN [Concomitant]
     Dosage: 2 MG, QD
  4. LYRICA [Suspect]
     Dosage: 50 MG, QD
     Route: 048
  5. LYRICA [Suspect]
     Dosage: 300 MG, UNK
  6. PREDNISONE [Suspect]
     Dosage: UNK
  7. HYDROCODONE BITARTRATE [Concomitant]
     Dosage: 325 MG, PRN
  8. PRILOSEC [Concomitant]
     Dosage: 40 MG, BID
  9. LYRICA [Suspect]
     Dosage: 150 MG, BID
     Route: 048
  10. DESOXIMETASONE [Suspect]
     Route: 061
  11. SIMVASTATIN [Concomitant]
     Dosage: 20 MG, QD
  12. ATENOLOL [Concomitant]
     Dosage: 50 MG, BID
  13. ELOCON [Suspect]
     Route: 061
  14. CYMBALTA [Suspect]
     Dosage: 60 MG, BID
  15. LOTREL [Concomitant]
     Dosage: 5/40, MG, QD
  16. TRAZODONE HYDROCHLORIDE [Concomitant]
     Dosage: 50 MG, QD

REACTIONS (7)
  - DRUG INEFFECTIVE [None]
  - BLISTER [None]
  - IRRITABILITY [None]
  - HYPERHIDROSIS [None]
  - MOOD ALTERED [None]
  - PRURITUS [None]
  - DEPRESSION [None]
